FAERS Safety Report 15132891 (Version 1)
Quarter: 2018Q3

REPORT INFORMATION
  Report Type: Spontaneous
  Country: US (occurrence: US)
  Receive Date: 20180712
  Receipt Date: 20180712
  Transmission Date: 20181010
  Serious: No
  Sender: FDA-Public Use
  Company Number: US-JNJFOC-20180634474

PATIENT
  Age: 44 Year
  Sex: Female
  Weight: 81.65 kg

DRUGS (2)
  1. SUDAFED 24 HOUR [Suspect]
     Active Substance: PSEUDOEPHEDRINE HYDROCHLORIDE
     Indication: EAR DISORDER
     Route: 065
     Dates: start: 20180617, end: 20180624
  2. SUDAFED 24 HOUR [Suspect]
     Active Substance: PSEUDOEPHEDRINE HYDROCHLORIDE
     Indication: SINUS DISORDER
     Route: 065
     Dates: start: 20180617, end: 20180624

REACTIONS (6)
  - Throat tightness [Recovered/Resolved]
  - Dry mouth [Recovered/Resolved]
  - Drug dose omission [Unknown]
  - Ear pain [Recovered/Resolved]
  - Off label use [Unknown]
  - Product use in unapproved indication [Unknown]

NARRATIVE: CASE EVENT DATE: 20180617
